FAERS Safety Report 4278873-5 (Version None)
Quarter: 2004Q1

REPORT INFORMATION
  Report Type: 
  Country: None (occurrence: None)
  Receive Date: 20040122
  Receipt Date: 20040122
  Transmission Date: 20041129
  Serious: No
  Sender: FDA-Public Use
  Company Number: None

PATIENT
  Age: 29 Year
  Sex: Male

DRUGS (16)
  1. EFFEXOR [Suspect]
     Indication: DEPRESSION
     Dosage: 75 MG QD ORAL
     Route: 048
     Dates: start: 20031211, end: 20031215
  2. SILDENAFIL [Concomitant]
  3. OXYCODONE AND ACETAMINOPHEN [Concomitant]
  4. VITAMIN E [Concomitant]
  5. ASCORBIC ACID [Concomitant]
  6. OXYCODONE HCL [Concomitant]
  7. NISOLIDIPINE [Concomitant]
  8. BISACODYL [Concomitant]
  9. LACTULOSE [Concomitant]
  10. SENNA [Concomitant]
  11. WHITE PETROLATU/MENTHOL [Concomitant]
  12. METHOCARBAMOL [Concomitant]
  13. GABAPENTIN [Concomitant]
  14. ENALAPRIL MALEATE [Concomitant]
  15. AMLODIPINE BESYLATE [Concomitant]
  16. AMITRIPTYLINE [Concomitant]

REACTIONS (1)
  - PETECHIAE [None]
